FAERS Safety Report 14270873 (Version 2)
Quarter: 2017Q4

REPORT INFORMATION
  Report Type: Spontaneous
  Country: US (occurrence: US)
  Receive Date: 20171211
  Receipt Date: 20171219
  Transmission Date: 20180321
  Serious: Yes (Death, Hospitalization, Other)
  Sender: FDA-Public Use
  Company Number: US-OTSUKA-12173894

PATIENT
  Age: 27 Year
  Sex: Female
  Weight: 126.07 kg

DRUGS (28)
  1. ABILIFY [Suspect]
     Active Substance: ARIPIPRAZOLE
     Dosage: 30 MG, UNK
     Route: 065
     Dates: start: 20030105
  2. HALOPERIDOL. [Concomitant]
     Active Substance: HALOPERIDOL
     Dosage: 20 MG, UNK
     Route: 065
     Dates: start: 20030113
  3. CLONIDINE HYDROCHLORIDE. [Suspect]
     Active Substance: CLONIDINE HYDROCHLORIDE
     Indication: PRODUCT USED FOR UNKNOWN INDICATION
     Dosage: 0.1 MG, UNK
     Route: 065
     Dates: start: 20030109
  4. ATROVENT [Concomitant]
     Active Substance: IPRATROPIUM BROMIDE
     Indication: PRODUCT USED FOR UNKNOWN INDICATION
     Dosage: NEBULIZER TREATMENT
     Route: 065
     Dates: start: 20030113
  5. SERAX [Concomitant]
     Active Substance: OXAZEPAM
     Dosage: 30 MG, UNK
     Route: 065
     Dates: start: 20030105
  6. FOLATE [Concomitant]
     Active Substance: FOLATE SODIUM
     Indication: PRODUCT USED FOR UNKNOWN INDICATION
     Dosage: UNK
     Route: 065
  7. IRON SUPPLEMENT [Concomitant]
     Active Substance: IRON
     Indication: PRODUCT USED FOR UNKNOWN INDICATION
     Dosage: UNK
     Route: 065
  8. ABILIFY [Suspect]
     Active Substance: ARIPIPRAZOLE
     Indication: PRODUCT USED FOR UNKNOWN INDICATION
     Dosage: 15 MG, QD
     Route: 065
     Dates: start: 20030104
  9. HALOPERIDOL. [Concomitant]
     Active Substance: HALOPERIDOL
     Dosage: 10 MG, UNK
     Route: 065
     Dates: start: 20030105
  10. TRILEPTAL [Concomitant]
     Active Substance: OXCARBAZEPINE
     Indication: PRODUCT USED FOR UNKNOWN INDICATION
     Dosage: 1200 MG, QD
     Route: 065
     Dates: start: 20030104
  11. COGENTIN [Concomitant]
     Active Substance: BENZTROPINE MESYLATE
     Indication: PRODUCT USED FOR UNKNOWN INDICATION
     Dosage: 0.1 MG, QD
     Route: 065
     Dates: start: 20030104, end: 20030105
  12. MULTIPLE VITAMINS [Concomitant]
     Active Substance: VITAMINS
     Indication: PRODUCT USED FOR UNKNOWN INDICATION
     Dosage: UNK
     Route: 065
  13. FUROSEMIDE. [Concomitant]
     Active Substance: FUROSEMIDE
     Indication: PRODUCT USED FOR UNKNOWN INDICATION
     Dosage: 20 MG, QD
     Route: 065
     Dates: start: 20030104
  14. HALOPERIDOL. [Concomitant]
     Active Substance: HALOPERIDOL
     Dosage: 20 MG, UNK
     Route: 065
     Dates: start: 20030115
  15. HALOPERIDOL. [Concomitant]
     Active Substance: HALOPERIDOL
     Dosage: 150 MG, UNK
     Route: 030
     Dates: start: 20030112
  16. HALOPERIDOL. [Concomitant]
     Active Substance: HALOPERIDOL
     Dosage: 100 MG, UNK
     Route: 030
     Dates: start: 20030109
  17. CLOZARIL [Concomitant]
     Active Substance: CLOZAPINE
     Indication: PRODUCT USED FOR UNKNOWN INDICATION
     Dosage: STARTED AT 150MG, TITRATED UP TO 700MG
     Route: 065
     Dates: start: 20030104
  18. HALOPERIDOL. [Concomitant]
     Active Substance: HALOPERIDOL
     Indication: PRODUCT USED FOR UNKNOWN INDICATION
     Dosage: 20 MG, UNK
     Route: 065
     Dates: start: 20030104
  19. DEPAKENE [Concomitant]
     Active Substance: VALPROIC ACID
     Indication: PRODUCT USED FOR UNKNOWN INDICATION
     Dosage: 2000 MG, QD
     Route: 065
     Dates: start: 20030109
  20. SERAX [Concomitant]
     Active Substance: OXAZEPAM
     Dosage: 30 MG, UNK
     Route: 065
     Dates: start: 20030115
  21. FOLATE SODIUM [Concomitant]
     Active Substance: FOLATE SODIUM
     Indication: PRODUCT USED FOR UNKNOWN INDICATION
     Dosage: UNK
     Route: 065
  22. CLONIDINE HYDROCHLORIDE. [Suspect]
     Active Substance: CLONIDINE HYDROCHLORIDE
     Dosage: 0.1 MG, UNK
     Route: 065
     Dates: start: 20030113
  23. CLONIDINE HYDROCHLORIDE. [Suspect]
     Active Substance: CLONIDINE HYDROCHLORIDE
     Dosage: 0.1 MG, BID
     Route: 065
     Dates: start: 20030114
  24. ALBUTEROL. [Concomitant]
     Active Substance: ALBUTEROL
     Indication: PRODUCT USED FOR UNKNOWN INDICATION
     Dosage: NEBULIZER TREATMENT
     Route: 065
     Dates: start: 20030113
  25. SERAX [Concomitant]
     Active Substance: OXAZEPAM
     Indication: PRODUCT USED FOR UNKNOWN INDICATION
     Dosage: 30 MG, QD
     Route: 065
     Dates: start: 20030104
  26. HALOPERIDOL. [Concomitant]
     Active Substance: HALOPERIDOL
     Dosage: 10 MG, UNK
     Route: 065
     Dates: start: 20030114
  27. HALOPERIDOL. [Concomitant]
     Active Substance: HALOPERIDOL
     Dosage: 150 MG, UNK
     Route: 030
     Dates: start: 20030105
  28. NORVASC [Concomitant]
     Active Substance: AMLODIPINE BESYLATE
     Indication: PRODUCT USED FOR UNKNOWN INDICATION
     Dosage: 5 MG, QD
     Route: 065
     Dates: start: 20030114

REACTIONS (9)
  - Drooling [Unknown]
  - Dyspnoea [Unknown]
  - Agitation [Unknown]
  - Somnolence [Unknown]
  - Treatment noncompliance [Unknown]
  - Blood pressure increased [Unknown]
  - Vomiting [Unknown]
  - Pyrexia [Unknown]
  - Death [Fatal]

NARRATIVE: CASE EVENT DATE: 20030113
